FAERS Safety Report 15794302 (Version 1)
Quarter: 2018Q4

REPORT INFORMATION
  Report Type: Spontaneous
  Country: US (occurrence: US)
  Receive Date: 20181213
  Receipt Date: 20181213
  Transmission Date: 20190205
  Serious: Yes (Death, Hospitalization)
  Sender: FDA-Public Use
  Company Number: None

PATIENT
  Sex: Female
  Weight: 91 kg

DRUGS (3)
  1. DEXAMETHASONE. [Suspect]
     Active Substance: DEXAMETHASONE
     Dates: end: 20181204
  2. VELCADE [Suspect]
     Active Substance: BORTEZOMIB
     Dates: end: 20181204
  3. LENALIDOMIDE (CC-5013) [Suspect]
     Active Substance: LENALIDOMIDE
     Dates: end: 20181203

REACTIONS (7)
  - Oedema peripheral [None]
  - Hypophagia [None]
  - Cardiogenic shock [None]
  - Multiple organ dysfunction syndrome [None]
  - Asthenia [None]
  - Fatigue [None]
  - Arthralgia [None]
